FAERS Safety Report 10742289 (Version 1)
Quarter: 2015Q1

REPORT INFORMATION
  Report Type: Other
  Country: CA (occurrence: CA)
  Receive Date: 20150127
  Receipt Date: 20150127
  Transmission Date: 20150721
  Serious: Yes (Hospitalization, Disabling, Other)
  Sender: FDA-Public Use
  Company Number: CA-APOTEX-2015AP005425

PATIENT
  Age: 58 Year
  Sex: Male

DRUGS (3)
  1. APO-MIRTAZAPINE [Suspect]
     Active Substance: MIRTAZAPINE
     Dosage: 150 MG, QD
     Route: 048
  2. APO-MIRTAZAPINE [Suspect]
     Active Substance: MIRTAZAPINE
     Indication: DEPRESSIVE SYMPTOM
     Dosage: 7.5 MG, Q.O.D.
     Route: 048
  3. APO-MIRTAZAPINE [Suspect]
     Active Substance: MIRTAZAPINE
     Indication: CHEST PAIN
     Dosage: 7.5 MG, QD
     Route: 048

REACTIONS (15)
  - Constipation [Unknown]
  - Disorientation [Unknown]
  - Asthenia [Unknown]
  - Weight decreased [Unknown]
  - Anxiety [Unknown]
  - Product substitution issue [Unknown]
  - Dysphagia [Unknown]
  - Dysphonia [Unknown]
  - Chest pain [Unknown]
  - Urinary incontinence [Unknown]
  - Depressed level of consciousness [Unknown]
  - Coordination abnormal [Unknown]
  - Fatigue [Unknown]
  - Cognitive disorder [Unknown]
  - Confusional state [Unknown]
